FAERS Safety Report 13612483 (Version 1)
Quarter: 2017Q2

REPORT INFORMATION
  Report Type: Report from Study
  Country: CA (occurrence: CA)
  Receive Date: 20170605
  Receipt Date: 20170605
  Transmission Date: 20170830
  Serious: Yes (Other)
  Sender: FDA-Public Use
  Company Number: CA-AMGEN-CANSL2015124974

PATIENT
  Age: 67 Year
  Sex: Female

DRUGS (14)
  1. PROLIA [Suspect]
     Active Substance: DENOSUMAB
     Indication: OSTEOPENIA
     Dosage: 60 MG, UNK
     Route: 058
     Dates: start: 20151120
  2. FATTY ACID (UNSPECIFIED) [Concomitant]
     Active Substance: FATTY ACIDS
     Dosage: UNK
     Route: 065
  3. MAGNESIUM [Concomitant]
     Active Substance: MAGNESIUM
     Dosage: 150 MG, UNK
  4. VITAMINS [Concomitant]
     Active Substance: VITAMINS
     Dosage: UNK
     Route: 065
  5. ZINC. [Concomitant]
     Active Substance: ZINC
  6. VITAMIN D [Concomitant]
     Active Substance: CHOLECALCIFEROL
     Dosage: 1000 IU, UNK
     Route: 065
  7. LEGALON [Concomitant]
     Active Substance: MILK THISTLE
     Indication: HEPATIC STEATOSIS
  8. LEGALON [Concomitant]
     Active Substance: MILK THISTLE
     Indication: CYST
  9. TELMISARTAN. [Concomitant]
     Active Substance: TELMISARTAN
     Dosage: UNK
     Route: 065
  10. VITAMIN C [Concomitant]
     Active Substance: ASCORBIC ACID
     Dosage: 1500 MG, UNK
  11. ASPIRIN. [Concomitant]
     Active Substance: ASPIRIN
     Dosage: 81 MG, UNK
     Route: 065
  12. CHROMIUM [Concomitant]
     Active Substance: CHROMIC CHLORIDE\CHROMIUM
     Indication: DIABETES PROPHYLAXIS
  13. TECTA [Concomitant]
     Active Substance: PANTOPRAZOLE MAGNESIUM
     Dosage: UNK
     Route: 065
  14. OMNARIS [Concomitant]
     Active Substance: CICLESONIDE
     Dosage: UNK
     Route: 065

REACTIONS (19)
  - Hepatic cyst [Unknown]
  - Infection [Unknown]
  - Pain [Unknown]
  - Dizziness postural [Unknown]
  - Tooth loss [Unknown]
  - Syncope [Unknown]
  - Stress [Unknown]
  - Hepatic steatosis [Unknown]
  - Headache [Unknown]
  - Pallor [Unknown]
  - Bone pain [Unknown]
  - Nervousness [Unknown]
  - Cerebrovascular accident [Unknown]
  - Hypertension [Unknown]
  - Dyspepsia [Unknown]
  - Feeling hot [Recovered/Resolved]
  - Pain in jaw [Recovered/Resolved]
  - Neuralgia [Unknown]
  - Off label use [Unknown]

NARRATIVE: CASE EVENT DATE: 201511
